FAERS Safety Report 9166345 (Version 1)
Quarter: 2013Q1

REPORT INFORMATION
  Report Type: Spontaneous
  Country: AR (occurrence: AR)
  Receive Date: 20130315
  Receipt Date: 20130315
  Transmission Date: 20140127
  Serious: Yes (Other)
  Sender: FDA-Public Use
  Company Number: PHHY2013AR023941

PATIENT
  Sex: Male
  Weight: 3.45 kg

DRUGS (2)
  1. GLIVEC [Suspect]
     Dosage: UNK UKN, UNK
     Route: 064
  2. INTERFERON [Suspect]
     Route: 064

REACTIONS (2)
  - Premature baby [Unknown]
  - Foetal exposure during pregnancy [Unknown]
